FAERS Safety Report 6575352-7 (Version None)
Quarter: 2010Q1

REPORT INFORMATION
  Report Type: 
  Country: None (occurrence: None)
  Receive Date: 20100209
  Receipt Date: 20100119
  Transmission Date: 20100710
  Serious: Yes (Disabling, Other)
  Sender: FDA-Public Use
  Company Number: GB-JNJFOC-20100110831

PATIENT

DRUGS (15)
  1. ACETAMINOPHEN W/ CODEINE TAB [Suspect]
     Indication: DRUG USE FOR UNKNOWN INDICATION
     Dosage: }8 TABLETS
     Route: 065
  2. DEXTROPROPOXYPHENE [Suspect]
     Indication: DRUG USE FOR UNKNOWN INDICATION
     Route: 065
  3. OXYCODONE HCL [Suspect]
     Indication: DRUG USE FOR UNKNOWN INDICATION
     Route: 065
  4. DOTHIEPIN HYDROCHLORIDE [Concomitant]
  5. CELECOXIB [Concomitant]
  6. ACETAZOLAMIDE [Concomitant]
  7. ALLOPURINOL [Concomitant]
  8. ASPIRIN [Concomitant]
  9. CALCITRIOL [Concomitant]
  10. FLUNITRAZEPAM [Concomitant]
  11. FUROSEMIDE [Concomitant]
  12. METOPROLOL TARTRATE [Concomitant]
  13. PREDNISOLONE [Concomitant]
  14. RAMIPRIL [Concomitant]
  15. SODIUM BICARBONATE [Concomitant]

REACTIONS (5)
  - DEAFNESS NEUROSENSORY [None]
  - LIVER FUNCTION TEST ABNORMAL [None]
  - MACROCYTOSIS [None]
  - MEDICATION ERROR [None]
  - TINNITUS [None]
